FAERS Safety Report 10754066 (Version 1)
Quarter: 2015Q1

REPORT INFORMATION
  Report Type: Spontaneous
  Country: US (occurrence: None)
  Receive Date: 20150129
  Receipt Date: 20150129
  Transmission Date: 20150721
  Serious: Yes (Other)
  Sender: FDA-Public Use
  Company Number: 2015-US-000857

PATIENT
  Sex: Female
  Weight: 119.7 kg

DRUGS (3)
  1. XYREM [Suspect]
     Active Substance: SODIUM OXYBATE
     Indication: NARCOLEPSY
     Route: 048
     Dates: start: 200910
  2. LANTUS INSULIN (INSULIN GLARGINE) [Concomitant]
  3. NOVOLOG [Concomitant]
     Active Substance: INSULIN ASPART

REACTIONS (23)
  - Post-traumatic stress disorder [None]
  - Cardiomyopathy [None]
  - Bradycardia [None]
  - Pulmonary hypertension [None]
  - Dementia [None]
  - Asbestosis [None]
  - Condition aggravated [None]
  - Hepatic cirrhosis [None]
  - Demyelination [None]
  - Arrhythmia [None]
  - Occupational asthma [None]
  - Hypoxic-ischaemic encephalopathy [None]
  - Chronic obstructive pulmonary disease [None]
  - Sleep apnoea syndrome [None]
  - Interstitial lung disease [None]
  - Psychomotor retardation [None]
  - Cholecystitis infective [None]
  - Psychogenic seizure [None]
  - Neuropathy peripheral [None]
  - Prescribed overdose [None]
  - Nervous system disorder [None]
  - Hypoxia [None]
  - Narcolepsy [None]
